FAERS Safety Report 19274881 (Version 1)
Quarter: 2021Q2

REPORT INFORMATION
  Report Type: Spontaneous
  Country: CA (occurrence: CA)
  Receive Date: 20210519
  Receipt Date: 20210519
  Transmission Date: 20210717
  Serious: Yes (Hospitalization)
  Sender: FDA-Public Use
  Company Number: CA-ARBOR PHARMACEUTICALS, LLC-CA-2021ARB000566

PATIENT
  Age: 17 Year
  Sex: Female

DRUGS (1)
  1. ERYTHROMYCIN. [Suspect]
     Active Substance: ERYTHROMYCIN
     Indication: OROPHARYNGEAL PAIN
     Dosage: 500 MG, QID
     Route: 048

REACTIONS (2)
  - Drug interaction [Recovered/Resolved]
  - Hypersensitivity [Recovered/Resolved]
